FAERS Safety Report 5817127-X (Version None)
Quarter: 2008Q3

REPORT INFORMATION
  Report Type: 
  Country: None (occurrence: None)
  Receive Date: 20080722
  Receipt Date: 20080711
  Transmission Date: 20090109
  Serious: No
  Sender: FDA-Public Use
  Company Number: US-BAYER-200827726NA

PATIENT
  Age: 17 Year
  Sex: Female
  Weight: 54 kg

DRUGS (1)
  1. YAZ [Suspect]
     Indication: AMENORRHOEA
     Route: 048
     Dates: end: 20080401

REACTIONS (6)
  - CUSHINGOID [None]
  - DEPRESSION [None]
  - FEELING ABNORMAL [None]
  - FLUID RETENTION [None]
  - IRRITABILITY [None]
  - WEIGHT INCREASED [None]
